FAERS Safety Report 13009668 (Version 2)
Quarter: 2020Q3

REPORT INFORMATION
  Report Type: Spontaneous
  Country: US (occurrence: US)
  Receive Date: 20161208
  Receipt Date: 20200907
  Transmission Date: 20201102
  Serious: Yes (Other)
  Sender: FDA-Public Use
  Company Number: US-CELGENEUS-USA-2016118907

PATIENT
  Sex: Male

DRUGS (4)
  1. DEXAMETHASONE. [Suspect]
     Active Substance: DEXAMETHASONE
     Indication: PRODUCT USED FOR UNKNOWN INDICATION
     Route: 065
     Dates: start: 201303
  2. REVLIMID [Suspect]
     Active Substance: LENALIDOMIDE
     Dosage: 15 MG
     Route: 048
     Dates: start: 201306
  3. REVLIMID [Suspect]
     Active Substance: LENALIDOMIDE
     Indication: PLASMA CELL MYELOMA
     Dosage: 25 MG
     Route: 048
     Dates: start: 201305, end: 201309
  4. REVLIMID [Suspect]
     Active Substance: LENALIDOMIDE
     Dosage: 15 MG
     Route: 048
     Dates: start: 201306

REACTIONS (11)
  - Fall [Unknown]
  - Blood glucose decreased [Unknown]
  - Loss of consciousness [Unknown]
  - Disturbance in attention [Unknown]
  - Amnesia [Unknown]
  - Back pain [Unknown]
  - Logorrhoea [Unknown]
  - Balance disorder [Unknown]
  - Arthralgia [Unknown]
  - Thrombosis [Unknown]
  - Fatigue [Unknown]
